FAERS Safety Report 8906214 (Version 1)
Quarter: 2012Q4

REPORT INFORMATION
  Report Type: Spontaneous
  Country: US (occurrence: None)
  Receive Date: 20121106
  Receipt Date: 20121106
  Transmission Date: 20130627
  Serious: Yes (Other)
  Sender: FDA-Public Use
  Company Number: 1210-620

PATIENT

DRUGS (1)
  1. EYLEA [Suspect]

REACTIONS (2)
  - Endophthalmitis [None]
  - Blindness [None]
